FAERS Safety Report 23196299 (Version 1)
Quarter: 2023Q4

REPORT INFORMATION
  Report Type: Spontaneous
  Country: CH (occurrence: CH)
  Receive Date: 20231117
  Receipt Date: 20231117
  Transmission Date: 20240110
  Serious: Yes (Other)
  Sender: FDA-Public Use
  Company Number: CH-002147023-NVSC2023CH203939

PATIENT
  Sex: Male

DRUGS (6)
  1. COSENTYX [Suspect]
     Active Substance: SECUKINUMAB
     Indication: Psoriasis
     Dosage: 300MG/2ML (INITIATION 1/WEEK, AFTERWARDS EVERY 4 WEEKS)
     Route: 058
     Dates: start: 20230901
  2. COSENTYX [Suspect]
     Active Substance: SECUKINUMAB
     Dosage: 300 MG/2 ML
     Route: 058
     Dates: start: 20230908
  3. COSENTYX [Suspect]
     Active Substance: SECUKINUMAB
     Dosage: 300 MG/2 ML
     Route: 058
     Dates: start: 20230915
  4. COSENTYX [Suspect]
     Active Substance: SECUKINUMAB
     Dosage: 300 MG/2 ML
     Route: 058
     Dates: start: 20230922
  5. COSENTYX [Suspect]
     Active Substance: SECUKINUMAB
     Dosage: 300 MG/2 ML
     Route: 058
     Dates: start: 20230929
  6. COSENTYX [Suspect]
     Active Substance: SECUKINUMAB
     Dosage: 300 MG/2 ML
     Route: 058
     Dates: start: 20231026

REACTIONS (2)
  - Periodontitis [Recovered/Resolved with Sequelae]
  - Resorption bone increased [Recovered/Resolved with Sequelae]
